FAERS Safety Report 7786187-1 (Version None)
Quarter: 2011Q3

REPORT INFORMATION
  Report Type: 
  Country: None (occurrence: None)
  Receive Date: 20110929
  Receipt Date: 20110712
  Transmission Date: 20111222
  Serious: No
  Sender: FDA-Public Use
  Company Number: US-BAYER-2011-061774

PATIENT
  Age: 32 Year
  Sex: Male
  Weight: 113 kg

DRUGS (1)
  1. ALEVE (CAPLET) [Suspect]
     Dosage: 3 CAPLETS, ONCE
     Route: 048

REACTIONS (1)
  - DYSPEPSIA [None]
